FAERS Safety Report 23693774 (Version 1)
Quarter: 2024Q1

REPORT INFORMATION
  Report Type: Spontaneous
  Country: US (occurrence: None)
  Receive Date: 20240331
  Receipt Date: 20240331
  Transmission Date: 20240409
  Serious: No
  Sender: FDA-Public Use
  Company Number: None

PATIENT
  Age: 36 Year
  Sex: Female
  Weight: 133.65 kg

DRUGS (1)
  1. CYANOCOBALAMIN\SEMAGLUTIDE [Suspect]
     Active Substance: CYANOCOBALAMIN\SEMAGLUTIDE

REACTIONS (6)
  - Vomiting [None]
  - Diarrhoea [None]
  - Nausea [None]
  - Abdominal pain [None]
  - Abdominal distension [None]
  - Fatigue [None]

NARRATIVE: CASE EVENT DATE: 20240322
